FAERS Safety Report 8502252-5 (Version None)
Quarter: 2012Q2

REPORT INFORMATION
  Report Type: 
  Country: None (occurrence: None)
  Receive Date: 20120405
  Receipt Date: 20100621
  Transmission Date: 20120825
  Serious: Yes (Other)
  Sender: FDA-Public Use
  Company Number: PHHY2010US30797

PATIENT
  Age: 75 Year
  Sex: Female
  Weight: 74.8 kg

DRUGS (10)
  1. CLARINEX [Concomitant]
  2. NEXIUM [Concomitant]
  3. ASPIRIN [Concomitant]
  4. CYTOMEL [Concomitant]
  5. RECLAST [Suspect]
     Indication: OSTEOPOROSIS
     Dosage: 5 MG, QD, INFUSION
     Dates: start: 20100505, end: 20100505
  6. LYRICA [Concomitant]
  7. LEVOTHYROXINE SODIUM [Concomitant]
  8. VITAMIN D [Concomitant]
  9. NASACORT [Concomitant]
  10. VESICARE [Concomitant]

REACTIONS (5)
  - DIZZINESS [None]
  - HYPERTENSION [None]
  - NAUSEA [None]
  - INFLUENZA LIKE ILLNESS [None]
  - HEADACHE [None]
